FAERS Safety Report 11969574 (Version 1)
Quarter: 2016Q1

REPORT INFORMATION
  Report Type: Spontaneous
  Country: US (occurrence: None)
  Receive Date: 20160127
  Receipt Date: 20160127
  Transmission Date: 20160526
  Serious: Yes (Other)
  Sender: FDA-Public Use
  Company Number: None

PATIENT
  Age: 36 Year
  Sex: Female
  Weight: 68.04 kg

DRUGS (1)
  1. ZYRTEC [Suspect]
     Active Substance: CETIRIZINE HYDROCHLORIDE
     Indication: SEASONAL ALLERGY
     Dosage: NO ONCE DAILY TAKEN BY MOUTH
     Route: 048

REACTIONS (4)
  - Skin injury [None]
  - Urticaria [None]
  - Pruritus generalised [None]
  - Drug withdrawal syndrome [None]

NARRATIVE: CASE EVENT DATE: 20160120
